FAERS Safety Report 7999436-1 (Version None)
Quarter: 2011Q4

REPORT INFORMATION
  Report Type: 
  Country: None (occurrence: None)
  Receive Date: 20111221
  Receipt Date: 20111215
  Transmission Date: 20120403
  Serious: Yes (Death)
  Sender: FDA-Public Use
  Company Number: GB-PFIZER INC-2011219671

PATIENT
  Age: 32 Year
  Sex: Male
  Weight: 69 kg

DRUGS (9)
  1. MS CONTIN [Suspect]
     Indication: PAIN
     Dosage: 20 MG, 2X/DAY
     Route: 048
     Dates: start: 20060117
  2. MORPHINE SULFATE [Suspect]
     Indication: PAIN
     Dosage: 80 MG, DAILY
     Route: 048
  3. CLOBAZAM [Suspect]
     Indication: CONVULSION
     Dosage: 20 MG, 2X/DAY
  4. BUPRENORPHINE [Concomitant]
     Route: 062
  5. TRILEPTAL [Concomitant]
  6. ZANAFLEX [Concomitant]
  7. PROZAC [Concomitant]
  8. TEMAZEPAM [Concomitant]
  9. PHENYTOIN SODIUM [Concomitant]

REACTIONS (4)
  - ACCIDENTAL OVERDOSE [None]
  - RESPIRATORY ARREST [None]
  - EPILEPSY [None]
  - TOXICITY TO VARIOUS AGENTS [None]
